FAERS Safety Report 7732263-9 (Version None)
Quarter: 2011Q3

REPORT INFORMATION
  Report Type: 
  Country: None (occurrence: None)
  Receive Date: 20110906
  Receipt Date: 20110822
  Transmission Date: 20111222
  Serious: No
  Sender: FDA-Public Use
  Company Number: US-AMGEN-USASP2011042882

PATIENT
  Age: 78 Year
  Sex: Female

DRUGS (6)
  1. CALCIUM +VIT D [Concomitant]
     Dosage: UNK
  2. NEXIUM [Concomitant]
  3. PROLIA [Suspect]
     Indication: OSTEOPOROSIS POSTMENOPAUSAL
     Dosage: 60 MG, Q6MO
  4. NEURONTIN [Concomitant]
  5. FERROUS SULFATE TAB [Concomitant]
  6. ASPIRIN [Concomitant]

REACTIONS (4)
  - HYPOAESTHESIA [None]
  - PRURITUS [None]
  - MUSCULAR WEAKNESS [None]
  - OEDEMA PERIPHERAL [None]
